FAERS Safety Report 21044707 (Version 2)
Quarter: 2022Q3

REPORT INFORMATION
  Report Type: Report from Study
  Country: BD (occurrence: None)
  Receive Date: 20220705
  Receipt Date: 20220712
  Transmission Date: 20221027
  Serious: Yes (Death)
  Sender: FDA-Public Use
  Company Number: 2022A245310

PATIENT
  Age: 13456 Day
  Sex: Female
  Weight: 55 kg

DRUGS (1)
  1. FASLODEX [Suspect]
     Active Substance: FULVESTRANT
     Indication: Breast cancer female
     Route: 030
     Dates: start: 20220103, end: 20220518

REACTIONS (1)
  - Death [Fatal]

NARRATIVE: CASE EVENT DATE: 20220617
